FAERS Safety Report 19412087 (Version 1)
Quarter: 2021Q2

REPORT INFORMATION
  Report Type: Spontaneous
  Country: US (occurrence: US)
  Receive Date: 20210614
  Receipt Date: 20210614
  Transmission Date: 20210717
  Serious: No
  Sender: FDA-Public Use
  Company Number: US-COVIS PHARMA GMBH-2020COV00215

PATIENT

DRUGS (2)
  1. IBRANCE [Suspect]
     Active Substance: PALBOCICLIB
     Dosage: 75 MG, UNK
     Dates: start: 20191101
  2. OMEPRAZOLE MAGNESIUM. [Suspect]
     Active Substance: OMEPRAZOLE MAGNESIUM
     Dosage: UNK
     Route: 048

REACTIONS (1)
  - Dyspepsia [Unknown]
